FAERS Safety Report 5739181-6 (Version None)
Quarter: 2008Q2

REPORT INFORMATION
  Report Type: 
  Country: None (occurrence: None)
  Receive Date: 20080515
  Receipt Date: 20080507
  Transmission Date: 20081010
  Serious: Yes (Other)
  Sender: FDA-Public Use
  Company Number: PHBS1998AU31505

PATIENT
  Age: 46 Year
  Sex: Male

DRUGS (8)
  1. FAMVIR [Suspect]
     Indication: GENITAL HERPES
     Dosage: 250 MG DAILY
     Route: 065
     Dates: start: 19980513
  2. FAMVIR [Suspect]
     Dosage: 125 MG, BID
     Route: 065
     Dates: start: 19980513
  3. AZT [Concomitant]
     Dosage: 500 MG DAILY
     Route: 048
     Dates: start: 19950109
  4. DDI (DIDEOXYINOSINE) [Concomitant]
     Dosage: UNK, UNK
     Route: 048
     Dates: start: 19980518
  5. NELFINAVIR [Concomitant]
     Dosage: 2.2 G DAILY
     Route: 048
     Dates: start: 19980318
  6. NEVIRAPINE [Concomitant]
     Dosage: UNK, UNK
     Route: 048
     Dates: start: 19980718
  7. PERTOFRAN (DESIPRAMINE) [Concomitant]
     Dosage: UNK, UNK
     Route: 048
     Dates: start: 19980211
  8. RESPRIM FORTE (TRIMETHOPRIM/SULFAMETHOXAZOLE) [Concomitant]
     Dosage: UNK, UNK
     Route: 048
     Dates: start: 19950109

REACTIONS (3)
  - DEAFNESS [None]
  - NEUROPATHY PERIPHERAL [None]
  - TINNITUS [None]
